FAERS Safety Report 18655410 (Version 2)
Quarter: 2020Q4

REPORT INFORMATION
  Report Type: Spontaneous
  Country: BR (occurrence: BR)
  Receive Date: 20201223
  Receipt Date: 20201231
  Transmission Date: 20210114
  Serious: No
  Sender: FDA-Public Use
  Company Number: BR-GLAXOSMITHKLINE-BR2020251772

PATIENT
  Sex: Male

DRUGS (2)
  1. AVODART [Suspect]
     Active Substance: DUTASTERIDE
     Indication: PROSTATOMEGALY
     Dosage: UNK
  2. AVODART [Suspect]
     Active Substance: DUTASTERIDE
     Indication: URINE FLOW DECREASED

REACTIONS (2)
  - Drug ineffective [Unknown]
  - Product complaint [Unknown]
